FAERS Safety Report 18615491 (Version 1)
Quarter: 2020Q4

REPORT INFORMATION
  Report Type: Spontaneous
  Country: US (occurrence: US)
  Receive Date: 20201215
  Receipt Date: 20201215
  Transmission Date: 20210114
  Serious: No
  Sender: FDA-Public Use
  Company Number: US-LUPIN PHARMACEUTICALS INC.-2020-03962

PATIENT
  Age: 26 Year
  Sex: Male

DRUGS (7)
  1. METHYLPHENIDATE. [Suspect]
     Active Substance: METHYLPHENIDATE
     Indication: HYPERSOMNIA
     Dosage: UNK
     Route: 065
  2. ARMODAFINIL. [Suspect]
     Active Substance: ARMODAFINIL
     Indication: HYPERSOMNIA
     Dosage: UNK
     Route: 065
  3. TOPIRAMAT [Suspect]
     Active Substance: TOPIRAMATE
     Indication: WEIGHT INCREASED
     Dosage: 50 MILLIGRAM, BID
     Route: 065
  4. TOPIRAMAT [Suspect]
     Active Substance: TOPIRAMATE
     Indication: MIGRAINE PROPHYLAXIS
  5. ARIPIPRAZOLE. [Suspect]
     Active Substance: ARIPIPRAZOLE
     Indication: DEPRESSION
     Dosage: 10 MILLIGRAM, QD (EVERY BEDTIME)
     Route: 065
  6. MODAFINIL. [Suspect]
     Active Substance: MODAFINIL
     Indication: HYPERSOMNIA
     Dosage: UNK
     Route: 065
  7. SERTRALINE [Concomitant]
     Active Substance: SERTRALINE HYDROCHLORIDE
     Indication: PRODUCT USED FOR UNKNOWN INDICATION
     Dosage: 100 MILLIGRAM, QD
     Route: 065

REACTIONS (4)
  - Somnambulism [Unknown]
  - Weight increased [Unknown]
  - Sleep-related eating disorder [Recovered/Resolved]
  - Drug ineffective [Unknown]
